FAERS Safety Report 19454693 (Version 1)
Quarter: 2021Q2

REPORT INFORMATION
  Report Type: Spontaneous
  Country: US (occurrence: US)
  Receive Date: 20210623
  Receipt Date: 20210623
  Transmission Date: 20210717
  Serious: Yes (Life-Threatening, Hospitalization)
  Sender: FDA-Public Use
  Company Number: US-MYLANLABS-2021M1036682

PATIENT
  Sex: Male

DRUGS (20)
  1. METHOTREXATE. [Suspect]
     Active Substance: METHOTREXATE
     Indication: B PRECURSOR TYPE ACUTE LEUKAEMIA
     Dosage: RECEIVED ON DAY 8 AND 29....
     Route: 037
     Dates: start: 201311
  2. METHOTREXATE. [Suspect]
     Active Substance: METHOTREXATE
     Dosage: 1000MG/M2/DOSE RECEIVED ON DAY 8; CONSOLIDATION CHEMOTHERAPY AS PER ALL R3 PROTOCOL
     Route: 065
  3. DEXAMETHASONE. [Suspect]
     Active Substance: DEXAMETHASONE
     Indication: B PRECURSOR TYPE ACUTE LEUKAEMIA
     Dosage: 20 MILLIGRAM/SQ. METER, QD )RECEIVED ON DAY 1?5 AND 15?19; REINDUCTION...
     Route: 065
  4. CYTARABINE. [Suspect]
     Active Substance: CYTARABINE
     Indication: B PRECURSOR TYPE ACUTE LEUKAEMIA
     Dosage: RECEIVED ON DAY 1; CHILDREN^S ONCOLOGY GROUP (COG) STUDY AALL1131 PROTOCOL
     Route: 037
     Dates: start: 201311
  5. DEXAMETHASONE. [Suspect]
     Active Substance: DEXAMETHASONE
     Dosage: 6 MILLIGRAM/SQ. METER, QD (RECEIVED ON DAY 1?5CONSOLIDATION CHEMOTHERAPY AS PER ALL R3 PROTOCOL)
     Route: 065
  6. VINCRISTINE [Suspect]
     Active Substance: VINCRISTINE
     Indication: B PRECURSOR TYPE ACUTE LEUKAEMIA
     Dosage: 1.5 MILLIGRAM/SQ. METER (RECEIVED ON DAY...
     Route: 042
     Dates: start: 201311
  7. PEGASPARGASE [Suspect]
     Active Substance: PEGASPARGASE
     Dosage: RECEIVED 2500U/M2 ON DAY 3 AND...
     Route: 065
  8. MITOXANTRONE [Suspect]
     Active Substance: MITOXANTRONE HYDROCHLORIDE
     Indication: B PRECURSOR TYPE ACUTE LEUKAEMIA
     Dosage: 10 MILLIGRAM/SQ. METER, 10MG/M2/DOSE DAY RECEIVED ON DAY 1?2; REINDUCTION..
     Route: 065
  9. VINCRISTINE [Suspect]
     Active Substance: VINCRISTINE
     Dosage: 1.5 MILLIGRAM/SQ. METER (RECEIVED 1.5NG/M2/DOSE ON DAY 2...
     Route: 065
  10. DAUNORUBICIN [Suspect]
     Active Substance: DAUNORUBICIN
     Indication: B PRECURSOR TYPE ACUTE LEUKAEMIA
     Dosage: 25 MILLIGRAM/SQ. METER (RECEIVED ON DAY 1, 8, 15...
     Route: 042
     Dates: start: 201311
  11. PEGASPARGASE [Suspect]
     Active Substance: PEGASPARGASE
     Dosage: RECEIVED 2500U/M2/DOSE ON DAY 9...
     Route: 065
  12. VINCRISTINE [Suspect]
     Active Substance: VINCRISTINE
     Dosage: RECEIVED 1.5MG/M2/DOSE RECEIVED ON DAY 3...
     Route: 065
  13. CYCLOPHOSPHAMIDE. [Suspect]
     Active Substance: CYCLOPHOSPHAMIDE
     Indication: B PRECURSOR TYPE ACUTE LEUKAEMIA
     Dosage: 440 MILLIGRAM/SQ. METER (RECEIVED 440MG/M2/DOSE ON DAY 15?19; CONSOLIDATION...
     Route: 065
  14. ALLOPURINOL. [Suspect]
     Active Substance: ALLOPURINOL
     Indication: B PRECURSOR TYPE ACUTE LEUKAEMIA
     Dosage: 300 MILLIGRAM, QD (CHILDREN^S ONCOLOGY GROUP (COG) STUDY AALL1131 PROTOCOL)
     Route: 065
     Dates: start: 201311
  15. METHOTREXATE. [Suspect]
     Active Substance: METHOTREXATE
     Dosage: RECEIVED ON DAY 1 AND 8; REINDUCTION CHEMOTHERAPY ALL R3 PROTOCOL
     Route: 037
  16. PREDNISONE. [Suspect]
     Active Substance: PREDNISONE
     Indication: B PRECURSOR TYPE ACUTE LEUKAEMIA
     Dosage: 60 MILLIGRAM/SQ. METER, QD (RECEIVED IN TWO DIVIDED DOSES ON DAY 1?28...
     Route: 065
     Dates: start: 201311
  17. ETOPOSIDE. [Suspect]
     Active Substance: ETOPOSIDE
     Indication: B PRECURSOR TYPE ACUTE LEUKAEMIA
     Dosage: 100 MILLIGRAM/SQ. METER (RECEIVED 100MG/M2/DOSE ON DAY 15?19; CONSOLIDATION...
     Route: 065
  18. PEGASPARGASE [Suspect]
     Active Substance: PEGASPARGASE
     Indication: B PRECURSOR TYPE ACUTE LEUKAEMIA
     Dosage: RECEIVED 2500IU/M2 ON DAY 4...
     Route: 065
     Dates: start: 201311
  19. METHOTREXATE. [Suspect]
     Active Substance: METHOTREXATE
     Dosage: RECEIVED ON DAY 1; CONSOLIDATION CHEMOTHERAPY AS PER ALL R3 PROTOCOL
     Route: 037
  20. FOLINIC ACID [Suspect]
     Active Substance: LEUCOVORIN
     Indication: B PRECURSOR TYPE ACUTE LEUKAEMIA
     Dosage: RECEIVED AS RESCUE THERAPY OF...
     Route: 065

REACTIONS (4)
  - Multiple organ dysfunction syndrome [Unknown]
  - Pneumonia necrotising [Unknown]
  - Pleural effusion [Unknown]
  - Sepsis [Unknown]
